FAERS Safety Report 13886128 (Version 7)
Quarter: 2021Q4

REPORT INFORMATION
  Report Type: Report from Study
  Country: CA (occurrence: CA)
  Receive Date: 20170821
  Receipt Date: 20211210
  Transmission Date: 20220303
  Serious: Yes (Other)
  Sender: FDA-Public Use
  Company Number: PHHY2014CA041075

PATIENT
  Age: 55 Year
  Sex: Female

DRUGS (6)
  1. SANDOSTATIN [Suspect]
     Active Substance: OCTREOTIDE ACETATE
     Indication: Neuroendocrine tumour
     Dosage: 100 UG, ONCE, TEST DOSE
     Route: 058
     Dates: start: 20140317, end: 20140317
  2. SANDOSTATIN [Suspect]
     Active Substance: OCTREOTIDE ACETATE
     Indication: Metastases to liver
  3. SANDOSTATIN [Suspect]
     Active Substance: OCTREOTIDE ACETATE
  4. SANDOSTATIN LAR DEPOT [Suspect]
     Active Substance: OCTREOTIDE ACETATE
     Indication: Neuroendocrine tumour
     Dosage: 30 MG, QMO (EVERY 4 WEEKS)
     Route: 030
     Dates: start: 20140330
  5. SANDOSTATIN LAR DEPOT [Suspect]
     Active Substance: OCTREOTIDE ACETATE
     Indication: Metastases to liver
  6. VERAPAMIL [Concomitant]
     Active Substance: VERAPAMIL HYDROCHLORIDE
     Indication: Blood pressure abnormal
     Dosage: UNK
     Route: 065

REACTIONS (17)
  - Diabetes mellitus [Unknown]
  - Blood pressure increased [Unknown]
  - Respiratory rate increased [Unknown]
  - Pyrexia [Recovered/Resolved]
  - Gastrooesophageal reflux disease [Recovered/Resolved]
  - Chest pain [Unknown]
  - Rhinorrhoea [Recovered/Resolved]
  - Periorbital swelling [Unknown]
  - Pyrexia [Unknown]
  - Diarrhoea [Unknown]
  - Urticaria [Recovering/Resolving]
  - Hypersensitivity [Unknown]
  - Feeling hot [Unknown]
  - Rash [Recovered/Resolved]
  - Rash [Unknown]
  - Pruritus [Unknown]
  - Injection site urticaria [Unknown]

NARRATIVE: CASE EVENT DATE: 20140330
